FAERS Safety Report 15123462 (Version 1)
Quarter: 2018Q3

REPORT INFORMATION
  Report Type: Other
  Country: DE (occurrence: DE)
  Receive Date: 20180709
  Receipt Date: 20180709
  Transmission Date: 20181010
  Serious: Yes (Other)
  Sender: FDA-Public Use
  Company Number: DE-MACLEODS PHARMACEUTICALS US LTD-MAC2018014650

PATIENT

DRUGS (12)
  1. METFORMIN HYDROCHLORIDE. [Suspect]
     Active Substance: METFORMIN HYDROCHLORIDE
     Indication: TYPE 2 DIABETES MELLITUS
     Dosage: UNK
     Route: 048
     Dates: start: 2013, end: 20170411
  2. METOPROLOL. [Concomitant]
     Active Substance: METOPROLOL
     Indication: CARDIAC FAILURE CONGESTIVE
     Dosage: DAILY DOSE: 47.5 MG MILLIGRAM(S) EVERY DAY
     Route: 048
     Dates: start: 2012
  3. ENTRESTO [Suspect]
     Active Substance: SACUBITRIL\VALSARTAN
     Indication: PRODUCT USED FOR UNKNOWN INDICATION
     Dosage: 1 DOSAGE FORM, QD,1 DF (97/103 MG), BID
     Route: 048
     Dates: start: 20160801, end: 20170406
  4. ENTRESTO [Suspect]
     Active Substance: SACUBITRIL\VALSARTAN
     Indication: CARDIAC FAILURE CHRONIC
     Dosage: 1 DOSAGE FORM, QD,DAILY DOSE: 2 DF DOSAGE FORM EVERY DAY
     Route: 048
     Dates: start: 20160601, end: 20160701
  5. CELECOXIB. [Suspect]
     Active Substance: CELECOXIB
     Indication: MUSCULOSKELETAL DISORDER
     Route: 065
  6. ENTRESTO [Suspect]
     Active Substance: SACUBITRIL\VALSARTAN
     Dosage: 1 DF (49/51 MG), BID
     Route: 048
     Dates: start: 20170406
  7. TORASEMIDE [Concomitant]
     Active Substance: TORSEMIDE
     Indication: CORONARY ARTERY DISEASE
  8. ENTRESTO [Suspect]
     Active Substance: SACUBITRIL\VALSARTAN
     Dosage: 1 DF (49/51 MG), BID
     Route: 048
     Dates: start: 20160701, end: 20160801
  9. ALLOPURINOL. [Concomitant]
     Active Substance: ALLOPURINOL
     Indication: HYPERURICAEMIA
     Dosage: 150 MILLIGRAM
     Route: 048
     Dates: start: 201609
  10. TORASEMIDE [Concomitant]
     Active Substance: TORSEMIDE
     Indication: CARDIAC FAILURE CONGESTIVE
     Dosage: DAILY DOSE: 5 MG MILLIGRAM(S) EVERY DAY
     Route: 048
     Dates: start: 2012
  11. MARCUMAR [Concomitant]
     Active Substance: PHENPROCOUMON
     Indication: ATRIAL FIBRILLATION
     Dosage: UNK, ACCORDING TO INR
     Route: 048
     Dates: start: 2012
  12. INEGY [Concomitant]
     Active Substance: EZETIMIBE\SIMVASTATIN
     Indication: CARDIAC FAILURE
     Dosage: 50 MG, UNK/ 10/40 MG, UNK 50 MILLIGRAM
     Route: 048
     Dates: start: 2012

REACTIONS (1)
  - Nephropathy [Recovering/Resolving]

NARRATIVE: CASE EVENT DATE: 20170403
